FAERS Safety Report 26151989 (Version 2)
Quarter: 2025Q4

REPORT INFORMATION
  Report Type: Report from Study
  Country: MX (occurrence: MX)
  Receive Date: 20251214
  Receipt Date: 20251221
  Transmission Date: 20260118
  Serious: Yes (Other)
  Sender: UNITED THERAPEUTICS
  Company Number: MX-UNITED THERAPEUTICS-UNT-2025-035519

PATIENT
  Age: 49 Year
  Sex: Female
  Weight: 95 kg

DRUGS (23)
  1. TREPROSTINIL SODIUM [Suspect]
     Active Substance: TREPROSTINIL SODIUM
     Indication: Pulmonary arterial hypertension
     Dosage: UNK [0.150 U/H (0.0015 ML/HR)], CONTINUING
  2. TREPROSTINIL SODIUM [Suspect]
     Active Substance: TREPROSTINIL SODIUM
     Dosage: UNK [0.300 IU/H], CONTINUING
  3. TREPROSTINIL SODIUM [Suspect]
     Active Substance: TREPROSTINIL SODIUM
     Dosage: UNK [0.600 IU/H], CONTINUING
  4. TREPROSTINIL SODIUM [Suspect]
     Active Substance: TREPROSTINIL SODIUM
     Dosage: UNK [0.9 U/H], CONTINUING
  5. TREPROSTINIL SODIUM [Suspect]
     Active Substance: TREPROSTINIL SODIUM
     Dosage: UNK [1.15 U/H], CONTINUING
  6. TREPROSTINIL SODIUM [Suspect]
     Active Substance: TREPROSTINIL SODIUM
     Dosage: UNK, CONTINUING
  7. OXYGEN [Suspect]
     Active Substance: OXYGEN
     Indication: Product used for unknown indication
     Dosage: UNK
  8. ACETAMINOPHEN [Suspect]
     Active Substance: ACETAMINOPHEN
     Indication: Headache
     Dosage: UNK
  9. OMEPRAZOLE [Suspect]
     Active Substance: OMEPRAZOLE
     Indication: Gastritis
     Dosage: UNK [SINGLE DOSE]
  10. DIMETHICONE [Suspect]
     Active Substance: DIMETHICONE
     Indication: Abdominal distension
     Dosage: UNK [SINGLE DOSE]
  11. DIMETHICONE [Suspect]
     Active Substance: DIMETHICONE
     Indication: Abdominal pain
  12. DIMETHICONE [Suspect]
     Active Substance: DIMETHICONE
     Indication: Gastritis
  13. IBUPROFEN [Suspect]
     Active Substance: IBUPROFEN
     Indication: Catheter site pain
     Dosage: UNK [SINGLE DOSE]
  14. IBUPROFEN [Suspect]
     Active Substance: IBUPROFEN
     Indication: Catheter site swelling
  15. RIOCIGUAT [Concomitant]
     Active Substance: RIOCIGUAT
     Indication: Product used for unknown indication
     Dosage: UNK
  16. MACITENTAN [Concomitant]
     Active Substance: MACITENTAN
     Indication: Product used for unknown indication
     Dosage: UNK
  17. SPIRONOLACTONE [Concomitant]
     Active Substance: SPIRONOLACTONE
     Indication: Product used for unknown indication
     Dosage: UNK
  18. FUROSEMIDE [Concomitant]
     Active Substance: FUROSEMIDE
     Indication: Product used for unknown indication
     Dosage: UNK
  19. MICCIL [Concomitant]
     Indication: Product used for unknown indication
     Dosage: UNK
  20. A.S. COR [Concomitant]
     Indication: Product used for unknown indication
     Dosage: UNK
  21. LINAGLIPTIN [Concomitant]
     Active Substance: LINAGLIPTIN
     Indication: Diabetes mellitus
     Dosage: UNK
  22. INSULIN GLARGINE [Concomitant]
     Active Substance: INSULIN GLARGINE
     Indication: Diabetes mellitus
     Dosage: UNK
  23. METFORMIN [Concomitant]
     Active Substance: METFORMIN HYDROCHLORIDE
     Indication: Diabetes mellitus
     Dosage: 850 MG, QD

REACTIONS (23)
  - Angina pectoris [Unknown]
  - Postmenopausal haemorrhage [Not Recovered/Not Resolved]
  - Colitis [Not Recovered/Not Resolved]
  - Tooth socket haemorrhage [Unknown]
  - Headache [Not Recovered/Not Resolved]
  - Pulmonary pain [Unknown]
  - Blood pressure decreased [Not Recovered/Not Resolved]
  - Heart rate increased [Recovered/Resolved]
  - Dizziness [Unknown]
  - Malaise [Unknown]
  - Tongue discomfort [Unknown]
  - Cardiac disorder [Unknown]
  - Nausea [Recovered/Resolved]
  - Abdominal distension [Not Recovered/Not Resolved]
  - Abdominal pain [Not Recovered/Not Resolved]
  - Gastritis [Not Recovered/Not Resolved]
  - Catheter site pain [Not Recovered/Not Resolved]
  - Catheter site swelling [Not Recovered/Not Resolved]
  - Insomnia [Not Recovered/Not Resolved]
  - Therapy partial responder [Unknown]
  - Therapy non-responder [Unknown]
  - Drug titration error [Unknown]
  - Expired product administered [Unknown]
